FAERS Safety Report 6258748-2 (Version None)
Quarter: 2009Q3

REPORT INFORMATION
  Report Type: 
  Country: None (occurrence: None)
  Receive Date: 20090707
  Receipt Date: 20090624
  Transmission Date: 20100115
  Serious: Yes (Other)
  Sender: FDA-Public Use
  Company Number: B0582243A

PATIENT
  Age: 55 Year
  Sex: Female
  Weight: 60 kg

DRUGS (5)
  1. AMOXIL [Suspect]
     Route: 048
  2. ESOMEPRAZOLE MAGNESIUM [Suspect]
     Route: 048
  3. KLACID [Suspect]
     Route: 048
  4. ADALAT [Concomitant]
  5. NULYTELY [Concomitant]

REACTIONS (2)
  - BLISTER [None]
  - PAIN IN EXTREMITY [None]
